FAERS Safety Report 6177691-0 (Version None)
Quarter: 2009Q2

REPORT INFORMATION
  Report Type: 
  Country: None (occurrence: None)
  Receive Date: 20090501
  Receipt Date: 20090501
  Transmission Date: 20091009
  Serious: No
  Sender: FDA-Public Use
  Company Number: None

PATIENT
  Age: 47 Year
  Sex: Female
  Weight: 63.5 kg

DRUGS (11)
  1. SODIUM CHLORIDE 3% [Suspect]
     Indication: INTRACRANIAL PRESSURE INCREASED
     Dosage: 50-100 ML/HR
     Dates: start: 20090131, end: 20090202
  2. RANITIDINE [Concomitant]
  3. SENNA [Concomitant]
  4. SIMVASTATIN [Concomitant]
  5. BUSPIRONE HCL [Concomitant]
  6. LEVETIRACETAM [Concomitant]
  7. NIMODIPINE [Concomitant]
  8. FENTANYL [Concomitant]
  9. LORAZEPAM [Concomitant]
  10. PANCURONIUM [Concomitant]
  11. NOREPI [Concomitant]

REACTIONS (1)
  - CEREBRAL INFARCTION [None]
